FAERS Safety Report 16829335 (Version 1)
Quarter: 2019Q3

REPORT INFORMATION
  Report Type: Spontaneous
  Country: US (occurrence: US)
  Receive Date: 20190919
  Receipt Date: 20190919
  Transmission Date: 20191005
  Serious: No
  Sender: FDA-Public Use
  Company Number: US-AMERICAN REGENT INC-20190813

PATIENT
  Sex: Female

DRUGS (1)
  1. INJECTAFER [Suspect]
     Active Substance: FERRIC CARBOXYMALTOSE
     Indication: PRODUCT USED FOR UNKNOWN INDICATION
     Dosage: UNKNOWN
     Route: 065

REACTIONS (6)
  - Eye swelling [Not Recovered/Not Resolved]
  - Rash macular [Unknown]
  - Eye pruritus [Not Recovered/Not Resolved]
  - Scab [Unknown]
  - Sensitive skin [Unknown]
  - Skin weeping [Unknown]
